FAERS Safety Report 16049651 (Version 1)
Quarter: 2019Q1

REPORT INFORMATION
  Report Type: Spontaneous
  Country: US (occurrence: US)
  Receive Date: 20190307
  Receipt Date: 20190307
  Transmission Date: 20190418
  Serious: Yes (Other)
  Sender: FDA-Public Use
  Company Number: US-009507513-1902USA012317

PATIENT
  Age: 9 Year
  Sex: Male

DRUGS (2)
  1. TEMODAR [Suspect]
     Active Substance: TEMOZOLOMIDE
     Dosage: 200 MG/M^2 DAILY ON DAYS 1?5 OF 28-DAY CYCLES, RECEIVED SEVEN CYCLES
  2. TEMODAR [Suspect]
     Active Substance: TEMOZOLOMIDE
     Indication: ANAPLASTIC ASTROCYTOMA
     Dosage: (90 MG/M^2) DAILY DURING RADIATION

REACTIONS (2)
  - Thrombocytopenia [Unknown]
  - Incorrect dose administered [Unknown]
